FAERS Safety Report 15902048 (Version 1)
Quarter: 2019Q1

REPORT INFORMATION
  Report Type: Other
  Country: GB (occurrence: GB)
  Receive Date: 20190201
  Receipt Date: 20190201
  Transmission Date: 20190417
  Serious: Yes (Other)
  Sender: FDA-Public Use
  Company Number: GB-HERITAGE PHARMACEUTICALS-2018HTG00586

PATIENT
  Sex: Male

DRUGS (2)
  1. SUMATRIPTAN 6MG/0.5 ML SOLUTION (SUN) [Suspect]
     Active Substance: SUMATRIPTAN
     Indication: CLUSTER HEADACHE
     Route: 065
  2. VERAPAMIL HYDROCHLORIDE. [Suspect]
     Active Substance: VERAPAMIL HYDROCHLORIDE
     Indication: HEADACHE
     Dosage: UNK
     Route: 065

REACTIONS (2)
  - Drug abuse [Unknown]
  - Overdose [Unknown]
